FAERS Safety Report 19646375 (Version 1)
Quarter: 2021Q3

REPORT INFORMATION
  Report Type: Spontaneous
  Country: US (occurrence: US)
  Receive Date: 20210802
  Receipt Date: 20210802
  Transmission Date: 20211014
  Serious: No
  Sender: FDA-Public Use
  Company Number: US-009507513-2107USA006842

PATIENT
  Sex: Male

DRUGS (1)
  1. JANUVIA [Suspect]
     Active Substance: SITAGLIPTIN PHOSPHATE
     Dosage: UNK
     Route: 048

REACTIONS (5)
  - COVID-19 [Unknown]
  - Renal disorder [Unknown]
  - Blood glucose increased [Unknown]
  - Product dose omission issue [Unknown]
  - Lung disorder [Unknown]
